FAERS Safety Report 8864391 (Version 1)
Quarter: 2012Q4

REPORT INFORMATION
  Report Type: 
  Country: US (occurrence: US)
  Receive Date: 20121024
  Receipt Date: 20121024
  Transmission Date: 20130627
  Serious: No
  Sender: FDA-Public Use
  Company Number: US-AMGEN-USASP2011067221

PATIENT
  Age: 64 Year
  Sex: Male

DRUGS (7)
  1. ENBREL [Suspect]
     Indication: PRODUCT USED FOR UNKNOWN INDICATION
     Dosage: 50 mg, qwk
     Route: 058
  2. PREDNISONE [Concomitant]
     Dosage: 1 mg, UNK
  3. DIOVAN [Concomitant]
     Dosage: 160 mg, UNK
  4. ASPIRIN [Concomitant]
     Dosage: 325 mg, UNK
  5. NEXIUM [Concomitant]
     Dosage: 20 mg, UNK
  6. FISH OIL [Concomitant]
     Dosage: UNK
  7. MULTIVITAMIN [Concomitant]
     Dosage: UNK

REACTIONS (1)
  - Injection site reaction [Unknown]
